FAERS Safety Report 13976923 (Version 3)
Quarter: 2018Q1

REPORT INFORMATION
  Report Type: Report from Study
  Country: FR (occurrence: FR)
  Receive Date: 20170915
  Receipt Date: 20180124
  Transmission Date: 20180508
  Serious: Yes (Hospitalization, Other)
  Sender: FDA-Public Use
  Company Number: FR-VELOXIS PHARMACEUTICALS-2026336

PATIENT
  Age: 61 Year
  Sex: Female
  Weight: 72.3 kg

DRUGS (15)
  1. PROGRAF [Concomitant]
     Active Substance: TACROLIMUS\TACROLIMUS ANHYDROUS
     Dates: start: 20170301, end: 20170710
  2. ENVARSUS XR [Suspect]
     Active Substance: TACROLIMUS
     Route: 048
     Dates: start: 20170908
  3. SODIUM BICARBONATE. [Concomitant]
     Active Substance: SODIUM BICARBONATE
     Dates: start: 20170621
  4. ENVARSUS XR [Suspect]
     Active Substance: TACROLIMUS
     Route: 048
     Dates: start: 20170718, end: 20170829
  5. CELLCEPT [Concomitant]
     Active Substance: MYCOPHENOLATE MOFETIL\MYCOPHENOLATE MOFETIL HYDROCHLORIDE
     Dates: start: 20170225
  6. CORTANCYL [Concomitant]
     Active Substance: PREDNISONE
     Dates: start: 20170228
  7. SPECIAFOLDINE [Concomitant]
     Active Substance: FOLIC ACID
     Dates: start: 20170622, end: 20170815
  8. ENVARSUS XR [Suspect]
     Active Substance: TACROLIMUS
     Route: 048
     Dates: start: 20170830, end: 20170907
  9. ENVARSUS XR [Suspect]
     Active Substance: TACROLIMUS
     Indication: PROPHYLAXIS AGAINST TRANSPLANT REJECTION
     Route: 048
     Dates: start: 20170711, end: 20170717
  10. CORTANCYL [Concomitant]
     Active Substance: PREDNISONE
  11. DUPHALAC [Concomitant]
     Active Substance: LACTULOSE
     Dates: start: 20170519, end: 20170815
  12. MIRCERA [Concomitant]
     Active Substance: METHOXY POLYETHYLENE GLYCOL-EPOETIN BETA
     Dates: start: 20170725
  13. INEXIUM [Concomitant]
     Active Substance: ESOMEPRAZOLE
     Dates: start: 20170308, end: 20170815
  14. MIMPARA [Concomitant]
     Active Substance: CINACALCET HYDROCHLORIDE
     Dates: start: 20170320
  15. LEVOTHYROX [Concomitant]
     Active Substance: LEVOTHYROXINE
     Dates: start: 20170228

REACTIONS (12)
  - Asthenia [Recovered/Resolved]
  - Renal impairment [Recovered/Resolved]
  - Decreased appetite [Recovered/Resolved]
  - Pyelonephritis acute [Recovered/Resolved]
  - Pyelocaliectasis [Recovered/Resolved]
  - Diarrhoea [Recovered/Resolved]
  - Hyperthermia [Recovered/Resolved]
  - Immunosuppressant drug level increased [Recovered/Resolved]
  - Tremor [Recovered/Resolved]
  - Dysphagia [Recovered/Resolved]
  - Acute kidney injury [Recovered/Resolved]
  - Anaemia [Recovered/Resolved]

NARRATIVE: CASE EVENT DATE: 20170712
